FAERS Safety Report 6426632-7 (Version None)
Quarter: 2009Q4

REPORT INFORMATION
  Report Type: 
  Country: None (occurrence: None)
  Receive Date: 20091030
  Receipt Date: 20090810
  Transmission Date: 20100525
  Serious: Yes (Hospitalization, Other)
  Sender: FDA-Public Use
  Company Number: CL-57-2009

PATIENT
  Age: 57 Year
  Sex: Female

DRUGS (3)
  1. CIPROFLOXACIN [Suspect]
     Indication: RESPIRATORY TRACT INFECTION
     Dosage: ONCE, ORAL; A SINGLE DOSE
     Route: 048
  2. PERINDOPRIL [Concomitant]
  3. INDAPAMIDE [Concomitant]

REACTIONS (2)
  - BLISTER [None]
  - RASH [None]
